FAERS Safety Report 7945790-6 (Version None)
Quarter: 2011Q4

REPORT INFORMATION
  Report Type: 
  Country: None (occurrence: None)
  Receive Date: 20111122
  Receipt Date: 20111109
  Transmission Date: 20120403
  Serious: Yes (Death, Life-Threatening, Hospitalization, Disabling)
  Sender: FDA-Public Use
  Company Number: 2009AL004122

PATIENT
  Age: 74 Year
  Sex: Male
  Weight: 81.1939 kg

DRUGS (35)
  1. SYNTHROID [Concomitant]
  2. RISPERDAL [Concomitant]
  3. COUMADIN [Concomitant]
  4. LOVENOX [Concomitant]
  5. ACETAMINOPHEN [Concomitant]
  6. GLUCOPHAGE [Concomitant]
  7. BETA BLOCKERS [Concomitant]
  8. DIGOXIN [Suspect]
     Indication: ATRIAL FIBRILLATION
     Dosage: 0.125 MG;QD;PO
     Route: 048
     Dates: start: 20020816, end: 20070615
  9. ARICEPT [Concomitant]
  10. GUAIFENESIN [Concomitant]
  11. ZITHROMAX [Concomitant]
  12. ACE INHIBITORS [Concomitant]
  13. LISINOPRIL [Concomitant]
  14. ASPIRIN [Concomitant]
  15. NITROGLYCERIN [Concomitant]
  16. AVANDIA [Concomitant]
  17. COMPAZINE [Concomitant]
  18. LEVAQUIN [Concomitant]
  19. DUONEB [Concomitant]
  20. INSULIN [Concomitant]
  21. ISOSORBIDE DINITRATE [Concomitant]
  22. LASIX [Concomitant]
  23. RISPERDAL [Concomitant]
  24. ZAROXOLYN [Concomitant]
  25. NAMENDA [Concomitant]
  26. SPIRONOLACTONE [Concomitant]
  27. POTASSIUM CHLORIDE [Concomitant]
  28. NORCO [Concomitant]
  29. ZOCOR [Concomitant]
  30. ALDACTONE [Concomitant]
  31. ZESTRIL [Concomitant]
  32. LEVAQUIN [Concomitant]
  33. COREG [Concomitant]
  34. LEVOXYL [Concomitant]
  35. IMODIUM [Concomitant]

REACTIONS (53)
  - OBESITY [None]
  - ASTHENIA [None]
  - DIZZINESS [None]
  - VOMITING [None]
  - PLEURAL EFFUSION [None]
  - MULTIPLE INJURIES [None]
  - HYPOXIA [None]
  - OEDEMA [None]
  - FAECAL INCONTINENCE [None]
  - TRICUSPID VALVE INCOMPETENCE [None]
  - DYSPNOEA [None]
  - PLEURAL FIBROSIS [None]
  - UNEVALUABLE EVENT [None]
  - ARTERIOSCLEROSIS [None]
  - CEREBROVASCULAR ACCIDENT [None]
  - RESPIRATORY DISTRESS [None]
  - COGNITIVE DISORDER [None]
  - MITRAL VALVE INCOMPETENCE [None]
  - MOBILITY DECREASED [None]
  - ECONOMIC PROBLEM [None]
  - CARDIO-RESPIRATORY ARREST [None]
  - PNEUMONIA [None]
  - VENTRICULAR TACHYARRHYTHMIA [None]
  - DEHYDRATION [None]
  - AMNESIA [None]
  - CARDIOMEGALY [None]
  - NEPHROLITHIASIS [None]
  - AORTIC VALVE INCOMPETENCE [None]
  - PULMONARY HYPERTENSION [None]
  - PULMONARY VALVE INCOMPETENCE [None]
  - BLOOD CHOLESTEROL INCREASED [None]
  - CARDIAC FAILURE CONGESTIVE [None]
  - DIABETES MELLITUS [None]
  - DEPRESSED LEVEL OF CONSCIOUSNESS [None]
  - APNOEA [None]
  - ARRHYTHMIA [None]
  - IMPAIRED SELF-CARE [None]
  - DEMENTIA ALZHEIMER'S TYPE [None]
  - GASTROINTESTINAL INFECTION [None]
  - RENAL FAILURE CHRONIC [None]
  - ARTHRALGIA [None]
  - HYPERLIPIDAEMIA [None]
  - URINARY INCONTINENCE [None]
  - NAUSEA [None]
  - BLOOD GLUCOSE DECREASED [None]
  - BLOOD ALKALINE PHOSPHATASE INCREASED [None]
  - BLOOD TRIGLYCERIDES INCREASED [None]
  - URINE ODOUR ABNORMAL [None]
  - DECREASED APPETITE [None]
  - DEEP VEIN THROMBOSIS [None]
  - NEUROPATHY PERIPHERAL [None]
  - BILIRUBIN CONJUGATED INCREASED [None]
  - CARDIAC MURMUR [None]
